FAERS Safety Report 7653032-4 (Version None)
Quarter: 2011Q3

REPORT INFORMATION
  Report Type: 
  Country: None (occurrence: None)
  Receive Date: 20110803
  Receipt Date: 20110721
  Transmission Date: 20111222
  Serious: No
  Sender: FDA-Public Use
  Company Number: US-B.I. PHARMACEUTICALS,INC./RIDGEFIELD-2011-BP-16066BP

PATIENT
  Age: 80 Year
  Sex: Male
  Weight: 73.48 kg

DRUGS (1)
  1. PRADAXA [Suspect]
     Dosage: 300 MG
     Dates: start: 20110308, end: 20110324

REACTIONS (3)
  - THROAT IRRITATION [None]
  - DYSPHAGIA [None]
  - OESOPHAGEAL PAIN [None]
